FAERS Safety Report 5068552-9 (Version None)
Quarter: 2006Q3

REPORT INFORMATION
  Report Type: 
  Country: None (occurrence: None)
  Receive Date: 20060802
  Receipt Date: 20051123
  Transmission Date: 20061208
  Serious: Yes (Hospitalization)
  Sender: FDA-Public Use
  Company Number: US-BRISTOL-MYERS SQUIBB COMPANY-13192901

PATIENT
  Age: 87 Year
  Sex: Female
  Weight: 74 kg

DRUGS (5)
  1. COUMADIN [Suspect]
     Indication: ATRIAL FIBRILLATION
     Dosage: DOSE REGIMEN:  ONE 5MG TABLET DAILY ALTERNATING EVERY OTHER DAY WITH ONE AND A HALF 5MG TABLET
     Route: 048
     Dates: start: 20051101
  2. DIGOXIN [Concomitant]
     Dosage: THERAPY FROM:  ^AT LEAST 02-NOV-2005^
  3. LASIX [Concomitant]
     Dosage: THERAPY FROM:  ^AT LEAST 02-NOV-2005^
  4. RAMIPRIL [Concomitant]
     Dosage: THERAPY FROM:  ^AT LEAST 02-NOV-2005^
  5. LOVENOX [Concomitant]
     Dosage: THERAPY FROM:  ^08-NOV-2005 OR 09-NOV-2005^
     Dates: start: 20051101

REACTIONS (1)
  - INTERNATIONAL NORMALISED RATIO FLUCTUATION [None]
